FAERS Safety Report 14786603 (Version 2)
Quarter: 2019Q1

REPORT INFORMATION
  Report Type: Spontaneous
  Country: US (occurrence: US)
  Receive Date: 20180420
  Receipt Date: 20190128
  Transmission Date: 20190417
  Serious: No
  Sender: FDA-Public Use
  Company Number: US-SA-2018SA074021

PATIENT
  Age: 43 Year
  Sex: Female

DRUGS (8)
  1. ACTEMRA [Concomitant]
     Active Substance: TOCILIZUMAB
  2. CIMZIA [Concomitant]
     Active Substance: CERTOLIZUMAB PEGOL
  3. XELJANZ [Concomitant]
     Active Substance: TOFACITINIB CITRATE
     Dosage: 5 MG, QD
     Route: 048
  4. KEVZARA [Suspect]
     Active Substance: SARILUMAB
     Indication: RHEUMATOID ARTHRITIS
     Dosage: 200 MG,QOW
     Route: 058
     Dates: start: 20180207
  5. ENBREL [Concomitant]
     Active Substance: ETANERCEPT
  6. SIMPONI [Concomitant]
     Active Substance: GOLIMUMAB
  7. IMURAN [Concomitant]
     Active Substance: AZATHIOPRINE
  8. HUMIRA [Concomitant]
     Active Substance: ADALIMUMAB

REACTIONS (6)
  - Application site reaction [Recovered/Resolved]
  - Skin exfoliation [Recovered/Resolved]
  - Injection site pruritus [Recovered/Resolved]
  - Injection site discolouration [Recovered/Resolved]
  - Injection site oedema [Recovered/Resolved]
  - Injection site erythema [Not Recovered/Not Resolved]

NARRATIVE: CASE EVENT DATE: 201802
